FAERS Safety Report 10391825 (Version 40)
Quarter: 2021Q1

REPORT INFORMATION
  Report Type: Other
  Country: CA (occurrence: CA)
  Receive Date: 20140819
  Receipt Date: 20210211
  Transmission Date: 20210419
  Serious: Yes (Hospitalization, Other)
  Sender: FDA-Public Use
  Company Number: CA-ROCHE-1451117

PATIENT
  Age: 60 Year
  Sex: Female
  Weight: 85 kg

DRUGS (17)
  1. ZOPICLONE [Concomitant]
     Active Substance: ZOPICLONE
  2. PLAQUENIL [Concomitant]
     Active Substance: HYDROXYCHLOROQUINE SULFATE
     Dates: start: 201911
  3. ACTEMRA [Suspect]
     Active Substance: TOCILIZUMAB
     Route: 042
     Dates: start: 20120104
  4. ACTEMRA [Suspect]
     Active Substance: TOCILIZUMAB
     Dosage: 656MG/100ML
     Route: 042
     Dates: start: 20181012
  5. ACTEMRA [Suspect]
     Active Substance: TOCILIZUMAB
     Indication: RHEUMATOID ARTHRITIS
     Route: 058
     Dates: start: 20201012
  6. LYRICA [Concomitant]
     Active Substance: PREGABALIN
  7. FUROSEMIDE. [Concomitant]
     Active Substance: FUROSEMIDE
     Indication: SWELLING
  8. ACTEMRA [Suspect]
     Active Substance: TOCILIZUMAB
     Indication: RHEUMATOID ARTHRITIS
     Route: 042
     Dates: start: 20110208
  9. ARAVA [Concomitant]
     Active Substance: LEFLUNOMIDE
     Dates: start: 201911
  10. CRESTOR [Concomitant]
     Active Substance: ROSUVASTATIN CALCIUM
  11. ACTEMRA [Suspect]
     Active Substance: TOCILIZUMAB
     Route: 042
     Dates: start: 20160317
  12. CITALOPRAM [Concomitant]
     Active Substance: CITALOPRAM HYDROBROMIDE
  13. ACTEMRA [Suspect]
     Active Substance: TOCILIZUMAB
     Route: 042
     Dates: start: 20160610
  14. ACTONEL [Concomitant]
     Active Substance: RISEDRONATE SODIUM
  15. DILAUDID [Concomitant]
     Active Substance: HYDROMORPHONE HYDROCHLORIDE
  16. DULOXETINE. [Concomitant]
     Active Substance: DULOXETINE
  17. CORTISONE [Suspect]
     Active Substance: CORTISONE
     Indication: PAIN
     Route: 065

REACTIONS (35)
  - Pain [Recovering/Resolving]
  - Back pain [Not Recovered/Not Resolved]
  - Intestinal obstruction [Unknown]
  - Oedema peripheral [Not Recovered/Not Resolved]
  - Blood pressure increased [Unknown]
  - Blood pressure diastolic decreased [Unknown]
  - Tooth loss [Not Recovered/Not Resolved]
  - Tooth disorder [Not Recovered/Not Resolved]
  - Oedema [Recovering/Resolving]
  - Facial pain [Not Recovered/Not Resolved]
  - Blood pressure systolic increased [Unknown]
  - Fatigue [Unknown]
  - Dysarthria [Recovered/Resolved]
  - Weight decreased [Unknown]
  - Urinary tract infection [Unknown]
  - Peripheral swelling [Not Recovered/Not Resolved]
  - Weight increased [Unknown]
  - Blood pressure fluctuation [Unknown]
  - Skin laceration [Recovering/Resolving]
  - Musculoskeletal stiffness [Unknown]
  - Bone disorder [Not Recovered/Not Resolved]
  - Hernia [Not Recovered/Not Resolved]
  - Tooth infection [Not Recovered/Not Resolved]
  - Stress [Not Recovered/Not Resolved]
  - Pneumonia [Not Recovered/Not Resolved]
  - Pneumonia [Not Recovered/Not Resolved]
  - Nail disorder [Unknown]
  - Blood pressure systolic abnormal [Unknown]
  - Balance disorder [Unknown]
  - Loss of consciousness [Recovered/Resolved]
  - Constipation [Not Recovered/Not Resolved]
  - Ileus [Unknown]
  - Dermatochalasis [Not Recovered/Not Resolved]
  - Fall [Unknown]
  - Arthralgia [Not Recovered/Not Resolved]

NARRATIVE: CASE EVENT DATE: 2014
